FAERS Safety Report 4510236-7 (Version None)
Quarter: 2004Q4

REPORT INFORMATION
  Report Type: 
  Country: None (occurrence: None)
  Receive Date: 20041124
  Receipt Date: 20041117
  Transmission Date: 20050328
  Serious: Yes (Other)
  Sender: FDA-Public Use
  Company Number: CH-ROCHE-386435

PATIENT
  Age: 19 Year
  Sex: Male

DRUGS (1)
  1. ROACCUTAN [Suspect]
     Indication: ACNE
     Route: 048
     Dates: start: 20040615, end: 20040615

REACTIONS (2)
  - CONJUNCTIVITIS [None]
  - UVEITIS [None]
